FAERS Safety Report 16039742 (Version 1)
Quarter: 2019Q1

REPORT INFORMATION
  Report Type: Spontaneous
  Country: GB (occurrence: GB)
  Receive Date: 20190306
  Receipt Date: 20190306
  Transmission Date: 20190418
  Serious: Yes (Other)
  Sender: FDA-Public Use
  Company Number: GB-ACCORD-110357

PATIENT
  Age: 23 Year
  Sex: Female
  Weight: 58.96 kg

DRUGS (6)
  1. AMITRIPTYLINE [Suspect]
     Active Substance: AMITRIPTYLINE
     Indication: PAIN
     Route: 048
     Dates: start: 20180829
  2. MORPHINE [Concomitant]
     Active Substance: MORPHINE
  3. PARACETAMOL [Concomitant]
     Active Substance: ACETAMINOPHEN
  4. PROCHLORPERAZINE. [Concomitant]
     Active Substance: PROCHLORPERAZINE
  5. DIHYDROCODEINE [Concomitant]
     Active Substance: DIHYDROCODEINE
  6. OMEPRAZOLE. [Concomitant]
     Active Substance: OMEPRAZOLE

REACTIONS (1)
  - Migraine [Recovering/Resolving]

NARRATIVE: CASE EVENT DATE: 20180906
